FAERS Safety Report 5003730-6 (Version None)
Quarter: 2006Q2

REPORT INFORMATION
  Report Type: 
  Country: None (occurrence: None)
  Receive Date: 20060516
  Receipt Date: 20060505
  Transmission Date: 20061013
  Serious: Yes (Death, Other)
  Sender: FDA-Public Use
  Company Number: GB-MERCK-0605GBR00032

PATIENT
  Age: 68 Year
  Sex: Female

DRUGS (2)
  1. DECADRON [Suspect]
     Indication: METASTASES TO LIVER
     Route: 048
     Dates: end: 20060302
  2. DECADRON [Suspect]
     Indication: RECTAL CANCER
     Route: 048
     Dates: end: 20060302

REACTIONS (4)
  - HYPERGLYCAEMIA [None]
  - HYPERGLYCAEMIC HYPEROSMOLAR NONKETOTIC SYNDROME [None]
  - METASTASES TO LIVER [None]
  - RECTAL CANCER [None]
